FAERS Safety Report 5691663-1 (Version None)
Quarter: 2008Q2

REPORT INFORMATION
  Report Type: 
  Country: None (occurrence: None)
  Receive Date: 20080402
  Receipt Date: 20060414
  Transmission Date: 20081010
  Serious: Yes (Death, Other)
  Sender: FDA-Public Use
  Company Number: US-ROCHE-444604

PATIENT
  Age: 67 Year
  Sex: Female
  Weight: 53.5 kg

DRUGS (6)
  1. XELODA [Suspect]
     Dosage: STRENGTH 500 MG
     Route: 048
     Dates: start: 20051130, end: 20060322
  2. DURAGESIC-100 [Concomitant]
     Indication: PAIN
     Route: 065
  3. METOPROLOL TARTRATE [Concomitant]
     Indication: HYPERTENSION
     Route: 065
  4. LIPITOR [Concomitant]
     Route: 065
  5. IRON [Concomitant]
     Route: 065
  6. DIGITEK [Concomitant]
     Route: 065

REACTIONS (2)
  - DEATH [None]
  - MALIGNANT ASCITES [None]
